FAERS Safety Report 11321256 (Version 2)
Quarter: 2015Q3

REPORT INFORMATION
  Report Type: Spontaneous
  Country: US (occurrence: US)
  Receive Date: 20150729
  Receipt Date: 20150803
  Transmission Date: 20151125
  Serious: No
  Sender: FDA-Public Use
  Company Number: US-BAYER-2015-389299

PATIENT
  Age: 61 Year
  Sex: Female
  Weight: 48.53 kg

DRUGS (1)
  1. CLARITIN-D 12 HOUR [Suspect]
     Active Substance: LORATADINE\PSEUDOEPHEDRINE SULFATE
     Indication: SINUS CONGESTION
     Dosage: 1 DF, QD
     Route: 048
     Dates: start: 20150724, end: 20150725

REACTIONS (3)
  - Vomiting [Recovered/Resolved]
  - Burn oesophageal [Recovered/Resolved]
  - Oropharyngeal pain [Recovered/Resolved]

NARRATIVE: CASE EVENT DATE: 20150724
